FAERS Safety Report 24879342 (Version 4)
Quarter: 2025Q2

REPORT INFORMATION
  Report Type: Spontaneous
  Country: US (occurrence: US)
  Receive Date: 20250123
  Receipt Date: 20250411
  Transmission Date: 20250716
  Serious: Yes (Hospitalization, Other)
  Sender: CATALYST PHARMA
  Company Number: US-CATALYST PHARMACEUTICALS, INC-US-CATA-24-01079

PATIENT
  Age: 36 Year
  Sex: Female
  Weight: 43.5 kg

DRUGS (26)
  1. FIRDAPSE [Suspect]
     Active Substance: AMIFAMPRIDINE PHOSPHATE
     Indication: Congenital myasthenic syndrome
     Dosage: 1 (10 MG) TABLET BY MOUTH 5 TIMES PER DAY
     Route: 048
     Dates: start: 20240926
  2. PROGRAF [Concomitant]
     Active Substance: TACROLIMUS
     Indication: Renal transplant
     Route: 048
  3. PROGRAF [Concomitant]
     Active Substance: TACROLIMUS
     Dosage: 1 MG IN AM AND 1 MG IN PM
     Route: 048
     Dates: start: 20250306
  4. DELTASONE [Concomitant]
     Active Substance: PREDNISONE
     Indication: Renal transplant
     Dosage: 3 MG EVERY OTHER DAY
     Route: 048
  5. DELTASONE [Concomitant]
     Active Substance: PREDNISONE
     Route: 048
  6. DELTASONE [Concomitant]
     Active Substance: PREDNISONE
     Dosage: 3 TABLET EVERY OTHER DAY WITH FOOD
     Route: 048
     Dates: start: 20241021
  7. IMURAN [Concomitant]
     Active Substance: AZATHIOPRINE
     Indication: Renal transplant
     Dosage: 25 MG DAILY
     Route: 048
  8. IMURAN [Concomitant]
     Active Substance: AZATHIOPRINE
     Route: 048
  9. IMURAN [Concomitant]
     Active Substance: AZATHIOPRINE
     Dosage: TAKE 1/2 TABLET DAILY, DISCARD OTHER HALF
     Route: 048
     Dates: start: 20250221
  10. BACTRIM DS [Concomitant]
     Active Substance: SULFAMETHOXAZOLE\TRIMETHOPRIM
     Indication: Prophylaxis
     Dosage: 1 TABLET DAILY
     Route: 048
     Dates: start: 20240724
  11. RESTASIS [Concomitant]
     Active Substance: CYCLOSPORINE
     Indication: Dry eye
     Dosage: DAILY
     Route: 047
  12. RESTASIS [Concomitant]
     Active Substance: CYCLOSPORINE
     Dosage: PLACE ONE DROP INTO BOTH EYES 2 TIMES A DAY
     Route: 047
     Dates: start: 20240705
  13. RESTASIS [Concomitant]
     Active Substance: CYCLOSPORINE
     Dosage: 1 DROP DAILY
     Route: 047
  14. VITAMIN D3 [Concomitant]
     Active Substance: CHOLECALCIFEROL
     Indication: Hypovitaminosis
     Dosage: 25 MCG DAILY
     Route: 048
  15. VITAMIN D3 [Concomitant]
     Active Substance: CHOLECALCIFEROL
     Dosage: 50 MCG (2,000 UNIT) DAILY
     Route: 048
     Dates: start: 20230401
  16. CALCIUM [Concomitant]
     Active Substance: CALCIUM
     Indication: Supplementation therapy
     Dosage: 600 MG DAILY
     Route: 065
  17. CALTRATE 600-D PLUS MINERALS [Concomitant]
     Indication: Product used for unknown indication
     Dosage: 2 TIMES A DAY
     Route: 048
  18. PENLAC [Concomitant]
     Active Substance: CICLOPIROX
     Indication: Product used for unknown indication
     Dosage: APPLY OVER THE NAIL AND SURRONDING SKIN DAILY AFTER 7 DAYS REMOVE WITH ALCOHOL AND CONTINUE CYCLE
     Route: 061
     Dates: start: 20241024
  19. CLEOCIN T [Concomitant]
     Active Substance: CLINDAMYCIN PHOSPHATE
     Indication: Product used for unknown indication
     Dosage: APPLY TO AFFECTED AREA ON THE FACE TWICE DAILY
     Route: 061
     Dates: start: 20241001
  20. CATAPRES [Concomitant]
     Active Substance: CLONIDINE HYDROCHLORIDE
     Indication: Product used for unknown indication
     Dosage: 1 TABLET DAILY
     Route: 048
     Dates: start: 20240712
  21. BRONKAID MAX [Concomitant]
     Active Substance: EPHEDRINE SULFATE
     Indication: Product used for unknown indication
     Dosage: 1 CAPSULE 4 TIMES DAILY
     Route: 048
     Dates: start: 20241213
  22. FLONASE [Concomitant]
     Active Substance: FLUTICASONE PROPIONATE
     Indication: Product used for unknown indication
     Route: 045
     Dates: start: 20240618
  23. GLYCOLAX [Concomitant]
     Active Substance: POLYETHYLENE GLYCOL 3350
     Indication: Product used for unknown indication
     Route: 048
     Dates: start: 20230403
  24. SENOKOT [Concomitant]
     Active Substance: SENNOSIDES
     Indication: Product used for unknown indication
     Dosage: 1 TABLET AT BEDTIME
     Route: 048
     Dates: start: 20230403
  25. RETIN-A [Concomitant]
     Active Substance: TRETINOIN
     Indication: Product used for unknown indication
     Dosage: APPLY SPARINGLY TO FACE DAILY AT BEDTIME, WAIT 20 MINUTES AFTER WASHING
     Route: 061
     Dates: start: 20240925
  26. MIRALAX [Concomitant]
     Active Substance: POLYETHYLENE GLYCOL 3350
     Indication: Product used for unknown indication
     Dosage: ONCE WEEKLY
     Route: 065

REACTIONS (10)
  - Ureteric stenosis [Recovered/Resolved]
  - Pneumonia [Recovered/Resolved]
  - Aspiration [Recovered/Resolved]
  - Nephrostomy [Recovered/Resolved]
  - Acute respiratory failure [Recovered/Resolved]
  - Sinus tachycardia [Unknown]
  - Asthenia [Unknown]
  - Paraesthesia [Unknown]
  - Paraesthesia oral [Unknown]
  - Off label use [Unknown]

NARRATIVE: CASE EVENT DATE: 20240926
